FAERS Safety Report 13802674 (Version 1)
Quarter: 2017Q3

REPORT INFORMATION
  Report Type: Spontaneous
  Country: US (occurrence: US)
  Receive Date: 20170727
  Receipt Date: 20170727
  Transmission Date: 20171127
  Serious: Yes (Other)
  Sender: FDA-Public Use
  Company Number: US-GLENMARK PHARMACEUTICALS-2017GMK028294

PATIENT
  Age: 18 Year
  Sex: Female

DRUGS (1)
  1. LAMOTRIGINE. [Suspect]
     Active Substance: LAMOTRIGINE
     Indication: PRODUCT USED FOR UNKNOWN INDICATION
     Dosage: UNK
     Route: 065

REACTIONS (7)
  - Rash [Unknown]
  - Abdominal pain [Unknown]
  - Drug reaction with eosinophilia and systemic symptoms [Unknown]
  - Mood altered [Unknown]
  - Temperature intolerance [Unknown]
  - Fatigue [Unknown]
  - Constipation [Unknown]
